FAERS Safety Report 13988772 (Version 1)
Quarter: 2017Q3

REPORT INFORMATION
  Report Type: Spontaneous
  Country: US (occurrence: US)
  Receive Date: 20170919
  Receipt Date: 20170919
  Transmission Date: 20171128
  Serious: No
  Sender: FDA-Public Use
  Company Number: None

PATIENT
  Age: 71 Month
  Sex: Female
  Weight: 51.3 kg

DRUGS (1)
  1. FIBRO FLEX [Suspect]
     Active Substance: HOMEOPATHICS
     Indication: FIBROMYALGIA
     Dosage: 1 SPRAY, DAILY
     Dates: start: 20170131, end: 20170131

REACTIONS (1)
  - Pruritus [None]

NARRATIVE: CASE EVENT DATE: 20170919
